APPROVED DRUG PRODUCT: ZYPITAMAG
Active Ingredient: PITAVASTATIN MAGNESIUM
Strength: EQ 4MG BASE
Dosage Form/Route: TABLET;ORAL
Application: N208379 | Product #003
Applicant: MEDICURE INTERNATIONAL INC
Approved: Jul 14, 2017 | RLD: Yes | RS: Yes | Type: RX

PATENTS:
Patent 8829186 | Expires: Jan 19, 2031